FAERS Safety Report 11434451 (Version 1)
Quarter: 2015Q3

REPORT INFORMATION
  Report Type: Spontaneous
  Country: US (occurrence: None)
  Receive Date: 20150828
  Receipt Date: 20150828
  Transmission Date: 20151125
  Serious: Yes (Disabling)
  Sender: FDA-Public Use
  Company Number: None

PATIENT
  Age: 61 Year
  Sex: Female
  Weight: 99.79 kg

DRUGS (19)
  1. LIADA [Concomitant]
  2. ESTROGEN [Concomitant]
     Active Substance: ESTRONE\SUS SCROFA OVARY
  3. B MULTIVITAMIN [Concomitant]
  4. ZYRTEC [Concomitant]
     Active Substance: CETIRIZINE HYDROCHLORIDE
  5. CIPRO [Suspect]
     Active Substance: CIPROFLOXACIN HYDROCHLORIDE
     Indication: DIVERTICULITIS
     Route: 048
     Dates: start: 20110915, end: 20120615
  6. ALLEGRA [Concomitant]
     Active Substance: FEXOFENADINE HYDROCHLORIDE
  7. ATORVASTATIN [Concomitant]
     Active Substance: ATORVASTATIN
  8. TIZANADINE [Concomitant]
  9. VITAMIN D3 [Concomitant]
     Active Substance: CHOLECALCIFEROL
  10. VITAMIN B12 [Concomitant]
     Active Substance: CYANOCOBALAMIN
  11. TYLENOL [Concomitant]
     Active Substance: ACETAMINOPHEN
  12. DOXYLAMINE [Concomitant]
     Active Substance: DOXYLAMINE
  13. KLOR-CON [Concomitant]
     Active Substance: POTASSIUM CHLORIDE
  14. LOSARTAN AND HYDROCHLOROTHIAZIDE [Concomitant]
     Active Substance: HYDROCHLOROTHIAZIDE\LOSARTAN POTASSIUM
  15. OMEPRAZOLE. [Concomitant]
     Active Substance: OMEPRAZOLE
  16. FOLIC ACID. [Concomitant]
     Active Substance: FOLIC ACID
  17. OMEGA 3 FISH OIL [Concomitant]
     Active Substance: FISH OIL\OMEGA-3 FATTY ACIDS
  18. CALCIUM/MAGNESIUM [Concomitant]
  19. TRILIPIX [Concomitant]
     Active Substance: FENOFIBRIC ACID

REACTIONS (9)
  - Memory impairment [None]
  - Bursitis [None]
  - Muscle spasms [None]
  - Sleep apnoea syndrome [None]
  - Fatigue [None]
  - Tendon rupture [None]
  - Stress [None]
  - Muscle contractions involuntary [None]
  - Thinking abnormal [None]
